FAERS Safety Report 6276831-2 (Version None)
Quarter: 2009Q3

REPORT INFORMATION
  Report Type: 
  Country: None (occurrence: None)
  Receive Date: 20090722
  Receipt Date: 20080911
  Transmission Date: 20100115
  Serious: No
  Sender: FDA-Public Use
  Company Number: US-BRISTOL-MYERS SQUIBB COMPANY-14332712

PATIENT

DRUGS (2)
  1. COUMADIN [Suspect]
     Route: 048
  2. PROVIGIL [Interacting]
     Route: 048

REACTIONS (2)
  - DRUG INTERACTION [None]
  - PROTHROMBIN LEVEL DECREASED [None]
